FAERS Safety Report 8897528 (Version 1)
Quarter: 2012Q4

REPORT INFORMATION
  Report Type: 
  Country: US (occurrence: US)
  Receive Date: 20121108
  Receipt Date: 20121108
  Transmission Date: 20130627
  Serious: No
  Sender: FDA-Public Use
  Company Number: US-AMGEN-USASP2012012242

PATIENT
  Sex: Female
  Weight: 62.59 kg

DRUGS (8)
  1. ENBREL [Suspect]
     Indication: PRODUCT USED FOR UNKNOWN INDICATION
     Dosage: 50 mg, qwk
  2. METHOTREXATE [Concomitant]
     Dosage: 2.5 mg, UNK
  3. ORTHO TRI CYCLEN [Concomitant]
  4. FOLIC ACID [Concomitant]
     Dosage: 1 mg, UNK
  5. DICLOFENAC [Concomitant]
     Dosage: 100 mg, UNK
  6. FISH OIL [Concomitant]
  7. MULTIVITAMIN                       /00097801/ [Concomitant]
  8. CORDRAN [Concomitant]

REACTIONS (3)
  - Nasopharyngitis [Recovered/Resolved]
  - Sinusitis [Recovered/Resolved]
  - Hypersensitivity [Recovered/Resolved]
